FAERS Safety Report 18735530 (Version 6)
Quarter: 2021Q2

REPORT INFORMATION
  Report Type: Report from Study
  Country: FR (occurrence: FR)
  Receive Date: 20210113
  Receipt Date: 20210605
  Transmission Date: 20210717
  Serious: Yes (Death, Hospitalization, Other)
  Sender: FDA-Public Use
  Company Number: FR-ROCHE-2745115

PATIENT
  Age: 70 Year
  Sex: Female
  Weight: 67 kg

DRUGS (23)
  1. NACL [Concomitant]
     Active Substance: SODIUM CHLORIDE
  2. CORDARONE [Concomitant]
     Active Substance: AMIODARONE HYDROCHLORIDE
  3. MACROGOL [Concomitant]
     Active Substance: POLYETHYLENE GLYCOLS
  4. FORLAX [Concomitant]
     Active Substance: POLYETHYLENE GLYCOL 4000
  5. ZELITREX [Concomitant]
     Active Substance: VALACYCLOVIR HYDROCHLORIDE
  6. TRIFLUCAN [Concomitant]
     Active Substance: FLUCONAZOLE
  7. PRIMPERAN [Concomitant]
     Active Substance: METOCLOPRAMIDE HYDROCHLORIDE
  8. ATEZOLIZUMAB. [Suspect]
     Active Substance: ATEZOLIZUMAB
     Indication: HEPATOCELLULAR CARCINOMA
     Dosage: ON 10 /JAN/2020, THE PATIENT RECEIVED THE MOST RECENT DOSE OF ATEZOLIZUMAB PRIOR TO THE EVENT ONSET;
     Route: 041
     Dates: start: 20190906, end: 20200117
  9. ALLOPURINOL. [Concomitant]
     Active Substance: ALLOPURINOL
  10. MIANSERINE [Concomitant]
     Active Substance: MIANSERIN HYDROCHLORIDE
  11. ZYLORIC [Concomitant]
     Active Substance: ALLOPURINOL
  12. AMLOR [Concomitant]
     Active Substance: AMLODIPINE BESYLATE
  13. XL184 [Suspect]
     Active Substance: CABOZANTINIB
     Indication: HEPATOCELLULAR CARCINOMA
     Dosage: ON 14 JAN 2020, THE PATIENT RECEIVED THE MOST RECENT DOSE OF CABOZANTINIB PRIOR TO THE EVENT ONSET.
     Route: 048
     Dates: start: 20190906, end: 20200117
  14. AMLODIPINE [Concomitant]
     Active Substance: AMLODIPINE BESYLATE
  15. SPIRONOLACTONE. [Concomitant]
     Active Substance: SPIRONOLACTONE
  16. LOVENOX [Concomitant]
     Active Substance: ENOXAPARIN SODIUM
  17. VITAMIN D [ERGOCALCIFEROL] [Concomitant]
     Active Substance: ERGOCALCIFEROL
  18. LEVOTHYROX [Concomitant]
     Active Substance: LEVOTHYROXINE
  19. GLUCOSE [Concomitant]
     Active Substance: DEXTROSE
  20. PARACETAMOL [Concomitant]
     Active Substance: ACETAMINOPHEN
  21. TAZOCILLINE [Concomitant]
     Active Substance: PIPERACILLIN SODIUM\TAZOBACTAM SODIUM
  22. ECONAZOLE. [Concomitant]
     Active Substance: ECONAZOLE NITRATE
  23. METFORMIN [Concomitant]
     Active Substance: METFORMIN HYDROCHLORIDE

REACTIONS (3)
  - Lung abscess [Fatal]
  - Sepsis [Fatal]
  - Pneumonia aspiration [Recovered/Resolved]

NARRATIVE: CASE EVENT DATE: 20200115
